FAERS Safety Report 19502607 (Version 1)
Quarter: 2021Q3

REPORT INFORMATION
  Report Type: Spontaneous
  Country: US (occurrence: US)
  Receive Date: 20210707
  Receipt Date: 20210707
  Transmission Date: 20211014
  Serious: Yes (Hospitalization)
  Sender: FDA-Public Use
  Company Number: US-VALIDUS PHARMACEUTICALS LLC-VDP-2021-000038

PATIENT
  Age: 86 Year
  Sex: Male
  Weight: 90.4 kg

DRUGS (2)
  1. LECANEMAB. [Suspect]
     Active Substance: LECANEMAB
     Indication: DEMENTIA ALZHEIMER^S TYPE
     Dosage: UNK, QOW
     Route: 042
     Dates: start: 20201104
  2. LASIX [Suspect]
     Active Substance: FUROSEMIDE
     Indication: PRODUCT USED FOR UNKNOWN INDICATION
     Dosage: UNK, QOW
     Route: 042

REACTIONS (3)
  - Hypotension [Recovered/Resolved]
  - Oedema peripheral [Unknown]
  - Dizziness [Unknown]

NARRATIVE: CASE EVENT DATE: 20210528
